FAERS Safety Report 9087463 (Version 1)
Quarter: 2013Q1

REPORT INFORMATION
  Report Type: Report from Study
  Country: US (occurrence: US)
  Receive Date: 20130201
  Receipt Date: 20130201
  Transmission Date: 20140127
  Serious: No
  Sender: FDA-Public Use
  Company Number: US-ABBOTT-12P-163-1024933-00

PATIENT
  Age: 34 Year
  Sex: Male

DRUGS (4)
  1. HUMIRA [Suspect]
     Indication: RHEUMATOID ARTHRITIS
     Dates: start: 201211
  2. IBUPROFEN [Concomitant]
     Indication: PAIN
  3. IBUPROFEN [Concomitant]
     Indication: HEADACHE
  4. ISONIAZID [Concomitant]
     Indication: PRODUCT USED FOR UNKNOWN INDICATION
     Dosage: FOR THE PAST 3 MONTHS; HAS 6 MONTHS MORE TREATMENT

REACTIONS (2)
  - Gingival pain [Recovered/Resolved]
  - Gingival bleeding [Recovered/Resolved]
